FAERS Safety Report 10735051 (Version 2)
Quarter: 2015Q1

REPORT INFORMATION
  Report Type: Spontaneous
  Country: US (occurrence: US)
  Receive Date: 20150123
  Receipt Date: 20150218
  Transmission Date: 20150721
  Serious: Yes (Hospitalization)
  Sender: FDA-Public Use
  Company Number: US-TAKEDA-2015TUS000565

PATIENT
  Sex: Female
  Weight: 105.21 kg

DRUGS (2)
  1. METHADONE [Interacting]
     Active Substance: METHADONE HYDROCHLORIDE
     Indication: PAIN
     Dosage: 10 MG, UNK
     Route: 065
  2. CONTRAVE [Suspect]
     Active Substance: BUPROPION HYDROCHLORIDE\NALTREXONE HYDROCHLORIDE
     Indication: OBESITY
     Dosage: 8MG/ 90MG
     Route: 048
     Dates: start: 20150108, end: 20150110

REACTIONS (3)
  - Labelled drug-drug interaction medication error [Unknown]
  - Drug withdrawal syndrome [Unknown]
  - Contraindicated drug administered [Unknown]
